FAERS Safety Report 18443838 (Version 1)
Quarter: 2020Q4

REPORT INFORMATION
  Report Type: Spontaneous
  Country: IN (occurrence: IN)
  Receive Date: 20201030
  Receipt Date: 20201030
  Transmission Date: 20210114
  Serious: Yes (Other)
  Sender: FDA-Public Use
  Company Number: IN-HETERO-HET2020IN01168

PATIENT
  Age: 25 Year
  Sex: Female

DRUGS (10)
  1. ILOPERIDONE. [Suspect]
     Active Substance: ILOPERIDONE
     Indication: HALLUCINATION, AUDITORY
     Dosage: 12 MG, QD
     Route: 065
  2. FLUPENTHIXOL                       /00109701/ [Concomitant]
     Active Substance: FLUPENTIXOL
     Indication: SCHIZOPHRENIA
     Route: 065
  3. HALOPERIDOL. [Concomitant]
     Active Substance: HALOPERIDOL
     Indication: SCHIZOPHRENIA
     Dosage: UNK
     Route: 065
  4. QUETIAPINE. [Suspect]
     Active Substance: QUETIAPINE
     Indication: HALLUCINATION, AUDITORY
     Dosage: UNK
     Route: 065
  5. RISPERIDONE. [Concomitant]
     Active Substance: RISPERIDONE
     Indication: SCHIZOPHRENIA
     Dosage: UNK
     Route: 065
     Dates: start: 2004
  6. CLOZAPINE. [Concomitant]
     Active Substance: CLOZAPINE
     Indication: SCHIZOPHRENIA
     Dosage: UNK
     Route: 065
     Dates: start: 2004
  7. PALIPERIDONE. [Concomitant]
     Active Substance: PALIPERIDONE
     Indication: SCHIZOPHRENIA
     Dosage: UNK
     Route: 065
  8. ARIPIPRAZOLE. [Suspect]
     Active Substance: ARIPIPRAZOLE
     Indication: HALLUCINATION, AUDITORY
     Dosage: UNK
     Route: 065
     Dates: start: 2004
  9. OLANZAPINE. [Suspect]
     Active Substance: OLANZAPINE
     Indication: HALLUCINATION, AUDITORY
     Dosage: UNK
     Route: 065
     Dates: start: 2004
  10. AMISULPRIDE [Concomitant]
     Active Substance: AMISULPRIDE
     Indication: SCHIZOPHRENIA
     Dosage: UNK
     Route: 065
     Dates: start: 2004

REACTIONS (4)
  - Drug ineffective [Unknown]
  - Hallucination, auditory [Recovering/Resolving]
  - Drug intolerance [Unknown]
  - Maternal exposure during pregnancy [Unknown]

NARRATIVE: CASE EVENT DATE: 201408
